FAERS Safety Report 22354775 (Version 1)
Quarter: 2023Q2

REPORT INFORMATION
  Report Type: Spontaneous
  Country: SE (occurrence: SE)
  Receive Date: 20230523
  Receipt Date: 20230523
  Transmission Date: 20230721
  Serious: Yes (Life-Threatening, Disabling)
  Sender: FDA-Public Use
  Company Number: None

PATIENT
  Age: 51 Year
  Sex: Female

DRUGS (2)
  1. PACLITAXEL [Suspect]
     Active Substance: PACLITAXEL
     Indication: Ovarian cancer
     Dosage: 6 MG INTRAVENOUSLY
     Route: 042
     Dates: start: 202110, end: 20220228
  2. CARBOPLATIN [Suspect]
     Active Substance: CARBOPLATIN
     Indication: Ovarian cancer
     Dosage: 10 MG INTRAVENOUSLY
     Route: 042
     Dates: start: 202110, end: 20220228

REACTIONS (3)
  - Pain [Not Recovered/Not Resolved]
  - Cortisol abnormal [Not Recovered/Not Resolved]
  - Non-cardiac chest pain [Unknown]

NARRATIVE: CASE EVENT DATE: 20210901
